FAERS Safety Report 6784897-6 (Version None)
Quarter: 2010Q2

REPORT INFORMATION
  Report Type: 
  Country: None (occurrence: None)
  Receive Date: 20100622
  Receipt Date: 20100614
  Transmission Date: 20101027
  Serious: Yes (Hospitalization)
  Sender: FDA-Public Use
  Company Number: US-ASTRAZENECA-2010SE27575

PATIENT
  Sex: Female
  Weight: 44.5 kg

DRUGS (1)
  1. PULMICORT RESPULES [Suspect]
     Indication: DYSPNOEA
     Route: 055
     Dates: start: 20060101, end: 20100101

REACTIONS (5)
  - DIVERTICULITIS [None]
  - DRUG DOSE OMISSION [None]
  - DYSPNOEA [None]
  - OESOPHAGEAL DISORDER [None]
  - WEIGHT DECREASED [None]
